FAERS Safety Report 5196965-3 (Version None)
Quarter: 2006Q4

REPORT INFORMATION
  Report Type: 
  Country: None (occurrence: None)
  Receive Date: 20061227
  Receipt Date: 20061212
  Transmission Date: 20070319
  Serious: Yes (Death, Hospitalization)
  Sender: FDA-Public Use
  Company Number: 2006147162

PATIENT
  Age: 70 Year
  Sex: Male

DRUGS (1)
  1. SUTENT [Suspect]
     Indication: RENAL CELL CARCINOMA STAGE UNSPECIFIED
     Dosage: 50 MG (50 MG, 1 IN 1 D), ORAL
     Route: 048
     Dates: start: 20061101

REACTIONS (22)
  - ASTHENIA [None]
  - COMPUTERISED TOMOGRAM ABNORMAL [None]
  - DIZZINESS [None]
  - EXCORIATION [None]
  - FLUID INTAKE REDUCED [None]
  - GENERAL PHYSICAL HEALTH DETERIORATION [None]
  - HAEMATOTOXICITY [None]
  - HERPES VIRUS INFECTION [None]
  - LEUKOPENIA [None]
  - METASTASES TO CENTRAL NERVOUS SYSTEM [None]
  - ORAL DISCOMFORT [None]
  - ORAL INFECTION [None]
  - ORAL INTAKE REDUCED [None]
  - PLATELET COUNT DECREASED [None]
  - PLEURAL EFFUSION [None]
  - PURPURA [None]
  - RESPIRATORY RATE INCREASED [None]
  - SCAB [None]
  - SEPSIS [None]
  - SKIN HAEMORRHAGE [None]
  - TONGUE BLISTERING [None]
  - VASCULITIS NECROTISING [None]
